FAERS Safety Report 5874353-1 (Version None)
Quarter: 2008Q3

REPORT INFORMATION
  Report Type: 
  Country: None (occurrence: None)
  Receive Date: 20080908
  Receipt Date: 20080725
  Transmission Date: 20090109
  Serious: Yes (Life-Threatening)
  Sender: FDA-Public Use
  Company Number: US-BAXTER-2008BH008087

PATIENT
  Age: 57 Year
  Sex: Male

DRUGS (2)
  1. VANCOMYCIN HCL [Suspect]
     Indication: CELLULITIS STAPHYLOCOCCAL
     Route: 042
  2. ACETAMINOPHEN AND OXYCODONE HCL [Concomitant]
     Indication: PAIN PROPHYLAXIS
     Route: 065

REACTIONS (1)
  - PULMONARY OEDEMA [None]
